FAERS Safety Report 18191794 (Version 2)
Quarter: 2020Q3

REPORT INFORMATION
  Report Type: Spontaneous
  Country: BR (occurrence: BR)
  Receive Date: 20200825
  Receipt Date: 20200902
  Transmission Date: 20201103
  Serious: Yes (Hospitalization, Other)
  Sender: FDA-Public Use
  Company Number: NVSC2020BR231920

PATIENT
  Age: 74 Year
  Sex: Female

DRUGS (2)
  1. IMATINIB. [Suspect]
     Active Substance: IMATINIB MESYLATE
     Indication: CHRONIC MYELOID LEUKAEMIA
     Dosage: UNK
     Route: 065
  2. NILOTINIB [Suspect]
     Active Substance: NILOTINIB
     Indication: PRODUCT USED FOR UNKNOWN INDICATION
     Dosage: UNK
     Route: 065
     Dates: start: 202007

REACTIONS (7)
  - Treatment failure [Unknown]
  - Stupor [Unknown]
  - Blood calcium increased [Unknown]
  - Somnolence [Unknown]
  - Hyperparathyroidism secondary [Unknown]
  - Blood parathyroid hormone increased [Unknown]
  - Disorientation [Unknown]
